FAERS Safety Report 7178901-3 (Version None)
Quarter: 2010Q4

REPORT INFORMATION
  Report Type: 
  Country: None (occurrence: None)
  Receive Date: 20101217
  Receipt Date: 20101217
  Transmission Date: 20110411
  Serious: Yes (Other)
  Sender: FDA-Public Use
  Company Number: None

PATIENT
  Age: 4 Year
  Sex: Female

DRUGS (2)
  1. LAMICTAL [Suspect]
  2. TRILEPTAL [Suspect]

REACTIONS (2)
  - RASH [None]
  - TIC [None]
